FAERS Safety Report 19895903 (Version 1)
Quarter: 2021Q3

REPORT INFORMATION
  Report Type: Spontaneous
  Country: DE (occurrence: DE)
  Receive Date: 20210929
  Receipt Date: 20210929
  Transmission Date: 20211014
  Serious: Yes (Other)
  Sender: FDA-Public Use
  Company Number: DE-SA-2021SA317175

PATIENT
  Age: 45 Year
  Sex: Male

DRUGS (10)
  1. CEFUROXIM [CEFUROXIME SODIUM] [Concomitant]
     Active Substance: CEFUROXIME SODIUM
     Dosage: 1.5 G
     Route: 042
  2. NORADRENALINE [NOREPINEPHRINE] [Concomitant]
     Active Substance: NOREPINEPHRINE
     Route: 042
  3. MILRINONE [Concomitant]
     Active Substance: MILRINONE
     Route: 042
  4. RIFAMPICIN [Suspect]
     Active Substance: RIFAMPIN
     Dosage: 600 MG, BID
     Route: 042
  5. DEXMEDETOMIDINE. [Concomitant]
     Active Substance: DEXMEDETOMIDINE
     Route: 042
  6. HUMANALBUMIN [Concomitant]
     Active Substance: ALBUMIN HUMAN
     Route: 042
  7. SUFENTANIL [Concomitant]
     Active Substance: SUFENTANIL
     Route: 042
  8. ADRENALIN (EPINEPHRINE) [Concomitant]
     Active Substance: EPINEPHRINE
     Route: 042
  9. VASOPRESSIN. [Concomitant]
     Active Substance: VASOPRESSIN
     Route: 042
  10. CEFUROXIM [CEFUROXIME SODIUM] [Concomitant]
     Active Substance: CEFUROXIME SODIUM
     Dosage: 3G
     Route: 042

REACTIONS (1)
  - Pulmonary oedema [Unknown]

NARRATIVE: CASE EVENT DATE: 20210310
